FAERS Safety Report 8745955 (Version 2)
Quarter: 2013Q4

REPORT INFORMATION
  Report Type: Report from Study
  Country: JP (occurrence: JP)
  Receive Date: 20120827
  Receipt Date: 20131106
  Transmission Date: 20140711
  Serious: Yes (Other)
  Sender: FDA-Public Use
  Company Number: JP-009507513-1208JPN008167

PATIENT
  Age: 61 Year
  Sex: Male
  Weight: 84 kg

DRUGS (18)
  1. PEGINTRON [Suspect]
     Indication: HEPATITIS C
     Dosage: 1.5 MICROGRAM PER KILOGRAM, UNK
     Route: 058
  2. REBETOL [Suspect]
     Indication: HEPATITIS C
     Dosage: 1000 MG, UNK
     Route: 048
     Dates: start: 20120424, end: 20120507
  3. REBETOL [Suspect]
     Dosage: 800 MG, UNK
     Route: 048
     Dates: start: 20120508, end: 20120514
  4. REBETOL [Suspect]
     Dosage: 400 MG, UNK
     Route: 048
     Dates: start: 20120515
  5. TELAVIC [Suspect]
     Indication: HEPATITIS C
     Dosage: 2250 MG, UNK
     Route: 048
     Dates: start: 20120424, end: 20120611
  6. TELAVIC [Suspect]
     Dosage: 1500 MG, QD
     Route: 048
     Dates: start: 20120703, end: 20120705
  7. NORVASC OD [Concomitant]
     Dosage: 10 MG, UNK
     Route: 048
  8. ZYLORIC [Concomitant]
     Dosage: 100 MG, QD
     Route: 048
     Dates: end: 20120521
  9. ZYLORIC [Concomitant]
     Dosage: 100 UNK, UNK
     Route: 048
     Dates: start: 20120619
  10. PARIET [Concomitant]
     Dosage: 10 MG, QD
     Route: 048
     Dates: start: 20120612, end: 20120630
  11. PARIET [Concomitant]
     Dosage: 10 MG, UNK
     Route: 048
     Dates: start: 20120706, end: 20120718
  12. DERMOVATE [Concomitant]
     Dosage: UNK
     Route: 061
     Dates: start: 20120612
  13. XYZAL [Concomitant]
     Dosage: 5 MG, QD
     Route: 048
     Dates: start: 20120615
  14. HIRUDOID [Concomitant]
     Dosage: UNK
     Route: 051
     Dates: start: 20120619
  15. RINDERON V [Concomitant]
     Dosage: UNK
     Route: 061
     Dates: start: 20120703
  16. PREDONINE [Concomitant]
     Indication: PROPHYLAXIS
     Dosage: 20 MG, QD
     Route: 048
     Dates: start: 20120703, end: 20120705
  17. GLACTIV [Concomitant]
     Dosage: 50 MG, QD
     Route: 048
     Dates: start: 20120703, end: 20120709
  18. [COMPOSITION UNSPECIFIED] [Concomitant]
     Dosage: 6 DF, UNK
     Route: 051
     Dates: start: 20120710

REACTIONS (1)
  - Generalised erythema [Recovered/Resolved with Sequelae]
